FAERS Safety Report 12471888 (Version 1)
Quarter: 2016Q2

REPORT INFORMATION
  Report Type: Spontaneous
  Country: US (occurrence: None)
  Receive Date: 20160615
  Receipt Date: 20160615
  Transmission Date: 20160815
  Serious: Yes (Hospitalization)
  Sender: FDA-Public Use
  Company Number: None

PATIENT
  Age: 89 Year
  Sex: Female
  Weight: 56.8 kg

DRUGS (8)
  1. DESYREL [Concomitant]
     Active Substance: TRAZODONE HYDROCHLORIDE
  2. OCUVITE [Concomitant]
     Active Substance: VITAMINS
  3. XARELTO [Suspect]
     Active Substance: RIVAROXABAN
     Indication: ATRIAL FIBRILLATION
  4. APAP [Concomitant]
     Active Substance: ACETAMINOPHEN
  5. LOSARTAN. [Concomitant]
     Active Substance: LOSARTAN
  6. TOPROL XL [Concomitant]
     Active Substance: METOPROLOL SUCCINATE
  7. ULTRAM [Concomitant]
     Active Substance: TRAMADOL HYDROCHLORIDE
  8. FUROSEMIDE. [Concomitant]
     Active Substance: FUROSEMIDE

REACTIONS (3)
  - Lower gastrointestinal haemorrhage [None]
  - Ulcer [None]
  - Diverticulum intestinal [None]

NARRATIVE: CASE EVENT DATE: 20150816
